FAERS Safety Report 4792871-4 (Version None)
Quarter: 2005Q4

REPORT INFORMATION
  Report Type: 
  Country: None (occurrence: None)
  Receive Date: 20051010
  Receipt Date: 20050930
  Transmission Date: 20060501
  Serious: Yes (Other)
  Sender: FDA-Public Use
  Company Number: PHBS2005CH14465

PATIENT
  Age: 74 Year
  Sex: Female

DRUGS (3)
  1. AREDIA [Concomitant]
     Dosage: UNK, QMO
     Dates: start: 19980123, end: 19991222
  2. AREDIA [Concomitant]
     Dosage: UNK, QMO
     Dates: start: 20001011, end: 20030220
  3. ZOMETA [Suspect]
     Dosage: UNK, QMO
     Dates: start: 20030320, end: 20040202

REACTIONS (1)
  - OSTEONECROSIS [None]
